FAERS Safety Report 18542641 (Version 2)
Quarter: 2020Q4

REPORT INFORMATION
  Report Type: Spontaneous
  Country: US (occurrence: US)
  Receive Date: 20201125
  Receipt Date: 20201223
  Transmission Date: 20210114
  Serious: No
  Sender: FDA-Public Use
  Company Number: US-ASTRAZENECA-2020SF44011

PATIENT
  Age: 760 Month
  Sex: Female
  Weight: 99.3 kg

DRUGS (5)
  1. PREDNISONE. [Concomitant]
     Active Substance: PREDNISONE
     Dosage: ONCE PATIENT WAS STARTED ON FASENRA IN NOV-2019 PATIENT WAS TAPERED TO 5
  2. FASENRA [Suspect]
     Active Substance: BENRALIZUMAB
     Indication: ASTHMA
     Dosage: 30MG/ML MONTHLY
     Route: 058
     Dates: start: 2020
  3. FASENRA [Suspect]
     Active Substance: BENRALIZUMAB
     Indication: ASTHMA
     Dosage: 30MG/ML EVERY EIGHT WEEKS
     Route: 058
     Dates: start: 201911, end: 2020
  4. PREDNISONE. [Concomitant]
     Active Substance: PREDNISONE
     Dosage: PREDNISONE STEROID BURST 10 MG, DAILY, EVERY OTHER MONTH
  5. PREDNISONE. [Concomitant]
     Active Substance: PREDNISONE
     Dosage: AFTER AE, PATIENT^S DOSE OF PREDNISONE INCREASED TO 10 MG, DAILY, EVERY OTHER MONTH WHEN NOT TAKI...

REACTIONS (1)
  - Asthma [Recovered/Resolved]

NARRATIVE: CASE EVENT DATE: 202010
